FAERS Safety Report 4350849-9 (Version None)
Quarter: 2004Q2

REPORT INFORMATION
  Report Type: 
  Country: None (occurrence: None)
  Receive Date: 20040427
  Receipt Date: 20040413
  Transmission Date: 20050107
  Serious: Yes (Disabling)
  Sender: FDA-Public Use
  Company Number: 04P-167-0257625-00

PATIENT
  Age: 56 Year
  Sex: Male
  Weight: 103.1 kg

DRUGS (13)
  1. HUMIRA [Suspect]
     Indication: RHEUMATOID ARTHRITIS
     Dosage: 40 MG, SUBCUTANEOUS
     Route: 058
     Dates: start: 20031105, end: 20031119
  2. INFLIXIMAB [Concomitant]
  3. PREDNISOLONE [Concomitant]
  4. ETORICOXIB [Concomitant]
  5. PANTOPRAZOLE [Concomitant]
  6. METHOTREXATE [Concomitant]
  7. FOLIC ACID [Concomitant]
  8. ACETAMINOPHEN AND CODEINE PHOSPHATE [Concomitant]
  9. PROCHLORPERAZINE [Concomitant]
  10. CALCIUM CARBONATE [Concomitant]
  11. CYCLOSPORINE [Concomitant]
  12. AMLODIPINE [Concomitant]
  13. ATENOLOL [Concomitant]

REACTIONS (9)
  - AGITATION [None]
  - ANGER [None]
  - DISTURBANCE IN ATTENTION [None]
  - HEADACHE [None]
  - MOOD SWINGS [None]
  - NAUSEA [None]
  - SLEEP DISORDER [None]
  - TEARFULNESS [None]
  - TREMOR [None]
